FAERS Safety Report 15936150 (Version 2)
Quarter: 2019Q1

REPORT INFORMATION
  Report Type: Report from Study
  Country: AU (occurrence: AU)
  Receive Date: 20190208
  Receipt Date: 20190214
  Transmission Date: 20190417
  Serious: Yes (Other)
  Sender: FDA-Public Use
  Company Number: AU-ROCHE-2259884

PATIENT
  Sex: Female

DRUGS (1)
  1. BEVACIZUMAB. [Suspect]
     Active Substance: BEVACIZUMAB
     Indication: OVARIAN EPITHELIAL CANCER
     Route: 033

REACTIONS (6)
  - Abdominal pain [Unknown]
  - Fatigue [Unknown]
  - Intestinal perforation [Unknown]
  - Nausea [Unknown]
  - Small intestinal obstruction [Unknown]
  - Abdominal distension [Unknown]
